FAERS Safety Report 24585148 (Version 2)
Quarter: 2024Q4

REPORT INFORMATION
  Report Type: Spontaneous
  Country: CO (occurrence: CO)
  Receive Date: 20241106
  Receipt Date: 20241205
  Transmission Date: 20250115
  Serious: Yes (Hospitalization, Other)
  Sender: PFIZER
  Company Number: CO-PFIZER INC-PV202400143759

PATIENT
  Age: 47 Year
  Sex: Male

DRUGS (9)
  1. VYNDAMAX [Suspect]
     Active Substance: TAFAMIDIS
     Indication: Amyloidosis
     Dosage: 61 MG, DAILY
  2. APIXABAN [Concomitant]
     Active Substance: APIXABAN
  3. LEVOTHYROXINE SODIUM [Concomitant]
     Active Substance: LEVOTHYROXINE SODIUM
     Dosage: 75 MG, 1X/DAY (MONDAY TO FRIDAY)
  4. LEVOTHYROXINE SODIUM [Concomitant]
     Active Substance: LEVOTHYROXINE SODIUM
     Dosage: 100 MG, 1X/DAY (SATURDAY AND SUNDAY)
  5. ESOMEPRAZOLE [Concomitant]
     Active Substance: ESOMEPRAZOLE
     Dosage: 20 MG, 1X/DAY
  6. EPLERENONE [Concomitant]
     Active Substance: EPLERENONE
  7. DAPAGLIFLOZIN [Concomitant]
     Active Substance: DAPAGLIFLOZIN
     Dosage: 10 MG, 1X/DAY
  8. BISOPROLOL [Concomitant]
     Active Substance: BISOPROLOL
     Dosage: 10 MG
  9. VALSARTAN [Concomitant]
     Active Substance: VALSARTAN
     Dosage: UNK, 2X/DAY

REACTIONS (2)
  - Arrhythmia [Not Recovered/Not Resolved]
  - Condition aggravated [Not Recovered/Not Resolved]

NARRATIVE: CASE EVENT DATE: 20240101
